FAERS Safety Report 11025579 (Version 1)
Quarter: 2015Q2

REPORT INFORMATION
  Report Type: Spontaneous
  Country: US (occurrence: US)
  Receive Date: 20150414
  Receipt Date: 20150414
  Transmission Date: 20150821
  Serious: No
  Sender: FDA-Public Use
  Company Number: US-GLAXOSMITHKLINE-US2015048488

PATIENT
  Age: 80 Year
  Sex: Female

DRUGS (14)
  1. ADVAIR DISKUS [Suspect]
     Active Substance: FLUTICASONE PROPIONATE\SALMETEROL XINAFOATE
     Indication: ASTHMA
     Dosage: 1 PUFF(S), BID
     Route: 055
     Dates: start: 20150219
  2. VITAMIN C [Concomitant]
     Active Substance: ASCORBIC ACID
  3. DILTIAZEM [Concomitant]
     Active Substance: DILTIAZEM
  4. DIOVAN [Concomitant]
     Active Substance: VALSARTAN
  5. IRON [Concomitant]
     Active Substance: IRON
  6. TRICOR [Concomitant]
     Active Substance: FENOFIBRATE
  7. CLONIDINE. [Concomitant]
     Active Substance: CLONIDINE
  8. HYALURONATE SODIUM [Concomitant]
     Active Substance: HYALURONATE SODIUM
  9. WARFARIN [Concomitant]
     Active Substance: WARFARIN
  10. FISH OIL [Concomitant]
     Active Substance: FISH OIL
  11. PROVENTIL [Concomitant]
     Active Substance: ALBUTEROL
  12. GLIMEPIRIDE. [Concomitant]
     Active Substance: GLIMEPIRIDE
  13. POTASSIUM CHLORIDE. [Concomitant]
     Active Substance: POTASSIUM CHLORIDE
  14. FOLIC ACID. [Concomitant]
     Active Substance: FOLIC ACID

REACTIONS (1)
  - Peripheral swelling [Not Recovered/Not Resolved]

NARRATIVE: CASE EVENT DATE: 20150409
